FAERS Safety Report 6868337-4 (Version None)
Quarter: 2010Q3

REPORT INFORMATION
  Report Type: 
  Country: None (occurrence: None)
  Receive Date: 20100722
  Receipt Date: 20100715
  Transmission Date: 20110219
  Serious: Yes (Hospitalization)
  Sender: FDA-Public Use
  Company Number: US-GILEAD-2010-0030201

PATIENT
  Sex: Female

DRUGS (12)
  1. LETAIRIS [Suspect]
     Indication: PULMONARY ARTERIAL HYPERTENSION
     Route: 048
     Dates: start: 20090527
  2. WARFARIN SODIUM [Concomitant]
  3. FUROSEMIDE [Concomitant]
  4. OXYGEN [Concomitant]
  5. AMLODIPINE [Concomitant]
  6. METOPROLOL SUCCINATE [Concomitant]
  7. ADULT ASPIRIN [Concomitant]
  8. LEVOTHYROXINE SODIUM [Concomitant]
  9. FAMOTIDINE [Concomitant]
  10. DOCUSATE SODIUM [Concomitant]
  11. MULTI-VITAMIN [Concomitant]
  12. POTASSIUM CHLORIDE [Concomitant]

REACTIONS (2)
  - INFECTION [None]
  - NEPHROPATHY [None]
